FAERS Safety Report 14695311 (Version 1)
Quarter: 2018Q1

REPORT INFORMATION
  Report Type: Spontaneous
  Country: US (occurrence: US)
  Receive Date: 20180329
  Receipt Date: 20180329
  Transmission Date: 20180509
  Serious: Yes (Other)
  Sender: FDA-Public Use
  Company Number: US-PFIZER INC-2018126649

PATIENT
  Age: 70 Year
  Sex: Female
  Weight: 81.65 kg

DRUGS (4)
  1. ETHAMBUTOL HCL [Suspect]
     Active Substance: ETHAMBUTOL HYDROCHLORIDE
     Dosage: 400 MG, 3X/DAY
     Route: 048
     Dates: end: 20180214
  2. AZITHROMYCIN ANHYDROUS. [Suspect]
     Active Substance: AZITHROMYCIN ANHYDROUS
     Indication: MYCOBACTERIUM AVIUM COMPLEX INFECTION
     Dosage: 250 MG, 1X/DAY
     Route: 048
     Dates: start: 201709
  3. AZITHROMYCIN ANHYDROUS. [Suspect]
     Active Substance: AZITHROMYCIN ANHYDROUS
     Dosage: 250 MG, 2X/DAY
     Route: 048
     Dates: end: 201802
  4. ETHAMBUTOL HCL [Suspect]
     Active Substance: ETHAMBUTOL HYDROCHLORIDE
     Indication: MYCOBACTERIUM AVIUM COMPLEX INFECTION
     Dosage: 400 MG, 2X/DAY
     Route: 048

REACTIONS (4)
  - Optic nerve injury [Unknown]
  - Peripheral nerve injury [Unknown]
  - Product use in unapproved indication [Unknown]
  - Eye injury [Unknown]

NARRATIVE: CASE EVENT DATE: 201709
